FAERS Safety Report 12645774 (Version 1)
Quarter: 2016Q3

REPORT INFORMATION
  Report Type: Spontaneous
  Country: US (occurrence: US)
  Receive Date: 20160811
  Receipt Date: 20160811
  Transmission Date: 20161109
  Serious: No
  Sender: FDA-Public Use
  Company Number: US-PFIZER INC-2016377888

PATIENT
  Age: 22 Year
  Sex: Female

DRUGS (3)
  1. NORCO [Concomitant]
     Active Substance: ACETAMINOPHEN\HYDROCODONE BITARTRATE
     Indication: TOOTH DISORDER
     Dosage: TOOK 1 LAST NIGHT
     Route: 048
  2. ADVIL [Suspect]
     Active Substance: IBUPROFEN
     Indication: TOOTH DISORDER
     Dosage: 200 MG, UNK
     Route: 048
     Dates: end: 20160805
  3. ADVIL [Suspect]
     Active Substance: IBUPROFEN
     Dosage: TOOK 6 ADVIL

REACTIONS (11)
  - Intentional product use issue [Unknown]
  - Abdominal discomfort [Not Recovered/Not Resolved]
  - Drug ineffective [Unknown]
  - Condition aggravated [Unknown]
  - Crying [Unknown]
  - Dizziness [Unknown]
  - Nausea [Not Recovered/Not Resolved]
  - Pain [Unknown]
  - Lacrimation increased [Unknown]
  - Eye disorder [Unknown]
  - Oral pain [Unknown]

NARRATIVE: CASE EVENT DATE: 20160804
